FAERS Safety Report 10196095 (Version 2)
Quarter: 2014Q2

REPORT INFORMATION
  Report Type: Spontaneous
  Country: US (occurrence: US)
  Receive Date: 20140527
  Receipt Date: 20140630
  Transmission Date: 20141212
  Serious: Yes (Other)
  Sender: FDA-Public Use
  Company Number: US-JNJFOC-20140508715

PATIENT
  Sex: Male

DRUGS (5)
  1. DURAGESIC [Suspect]
     Indication: PAIN
     Route: 062
  2. DURAGESIC [Suspect]
     Indication: PAIN
     Dosage: 75MCG PATCH AND A 50MCG PATCH
     Route: 062
  3. DURAGESIC [Suspect]
     Indication: PAIN
     Route: 062
  4. DURAGESIC [Suspect]
     Indication: PAIN
     Route: 062
     Dates: start: 2002
  5. MORPHINE [Concomitant]
     Indication: BREAKTHROUGH PAIN
     Dosage: DOSE-30 MISR
     Route: 048

REACTIONS (11)
  - Hip fracture [Recovered/Resolved]
  - Arthroscopic surgery [Unknown]
  - Fall [Recovered/Resolved]
  - Product quality issue [Unknown]
  - Breakthrough pain [Not Recovered/Not Resolved]
  - Drug dose omission [Recovered/Resolved]
  - Weight increased [Not Recovered/Not Resolved]
  - Arthropathy [Recovered/Resolved]
  - Wrong technique in drug usage process [Unknown]
  - Product adhesion issue [Unknown]
  - Suspected counterfeit product [Not Recovered/Not Resolved]
